FAERS Safety Report 18674847 (Version 1)
Quarter: 2020Q4

REPORT INFORMATION
  Report Type: Spontaneous
  Country: US (occurrence: US)
  Receive Date: 20201229
  Receipt Date: 20201229
  Transmission Date: 20210114
  Serious: Yes (Other)
  Sender: FDA-Public Use
  Company Number: US-HORIZON-2020HZN02817

PATIENT
  Age: 44 Year
  Sex: Male
  Weight: 136.08 kg

DRUGS (8)
  1. EFFEXOR XR [Concomitant]
     Active Substance: VENLAFAXINE HYDROCHLORIDE
  2. TEPEZZA [Suspect]
     Active Substance: TEPROTUMUMAB-TRBW
     Indication: BASEDOW^S DISEASE
  3. PRAZOSIN HCL [Concomitant]
     Active Substance: PRAZOSIN HYDROCHLORIDE
  4. TYLENOL [Concomitant]
     Active Substance: ACETAMINOPHEN
  5. ATENOLOL. [Concomitant]
     Active Substance: ATENOLOL
  6. METFORMIN [Concomitant]
     Active Substance: METFORMIN HYDROCHLORIDE
  7. MAGNESIUM OXIDE. [Concomitant]
     Active Substance: MAGNESIUM OXIDE
  8. HYDROCHLOROTHIAZIDE. [Concomitant]
     Active Substance: HYDROCHLOROTHIAZIDE

REACTIONS (9)
  - Anxiety [Unknown]
  - Fatigue [Unknown]
  - Hyperglycaemia [Unknown]
  - Arthralgia [Unknown]
  - Dizziness [Unknown]
  - Abdominal pain [Unknown]
  - Eye pain [Unknown]
  - Diplopia [Unknown]
  - Headache [Unknown]
